FAERS Safety Report 22993930 (Version 3)
Quarter: 2023Q4

REPORT INFORMATION
  Report Type: Spontaneous
  Country: US (occurrence: US)
  Receive Date: 20230927
  Receipt Date: 20231002
  Transmission Date: 20240110
  Serious: No
  Sender: FDA-Public Use
  Company Number: US-Calliditas-2023CAL01248

PATIENT
  Age: 25 Year
  Sex: Male

DRUGS (2)
  1. TARPEYO [Suspect]
     Active Substance: BUDESONIDE
     Indication: IgA nephropathy
     Dosage: 16 MG (4 MG CAPSULES) ONCE DAILY FOR
     Route: 048
     Dates: start: 20230901
  2. REMICADE [Concomitant]
     Active Substance: INFLIXIMAB

REACTIONS (4)
  - Acne [Not Recovered/Not Resolved]
  - Blood pressure increased [Recovering/Resolving]
  - Asthenopia [Not Recovered/Not Resolved]
  - Hot flush [Recovering/Resolving]

NARRATIVE: CASE EVENT DATE: 20230903
